FAERS Safety Report 16103222 (Version 1)
Quarter: 2019Q1

REPORT INFORMATION
  Report Type: Spontaneous
  Country: GB (occurrence: GB)
  Receive Date: 20190322
  Receipt Date: 20190322
  Transmission Date: 20190418
  Serious: Yes (Hospitalization, Disabling, Other)
  Sender: FDA-Public Use
  Company Number: GB-TEVA-2019-GB-1026400

PATIENT
  Age: 19 Year
  Sex: Male
  Weight: 78.01 kg

DRUGS (4)
  1. M+A PHARMACHEM CO-CODAMOL [Concomitant]
     Route: 065
  2. GALPHARM HEALTHCARE IBUPROFEN [Concomitant]
     Active Substance: IBUPROFEN
     Route: 065
  3. GALPHARM HEALTHCARE PARACETAMOL [Concomitant]
     Route: 065
  4. NAPROXEN. [Suspect]
     Active Substance: NAPROXEN
     Indication: PAIN
     Dosage: 1000 MILLIGRAM DAILY;
     Route: 048
     Dates: start: 20190205, end: 20190218

REACTIONS (4)
  - Malaise [Not Recovered/Not Resolved]
  - Duodenal ulcer [Recovering/Resolving]
  - Dizziness [Not Recovered/Not Resolved]
  - Faeces discoloured [Recovering/Resolving]

NARRATIVE: CASE EVENT DATE: 20190214
